FAERS Safety Report 18156344 (Version 1)
Quarter: 2020Q3

REPORT INFORMATION
  Report Type: Spontaneous
  Country: US (occurrence: US)
  Receive Date: 20200815
  Receipt Date: 20200815
  Transmission Date: 20201103
  Serious: Yes (Hospitalization)
  Sender: FDA-Public Use
  Company Number: None

PATIENT
  Age: 66 Year
  Sex: Female

DRUGS (4)
  1. FORTEO [Suspect]
     Active Substance: TERIPARATIDE
     Indication: OSTEOPOROTIC FRACTURE
     Route: 058
     Dates: start: 20200504
  2. ESCITALOPRAM, FOSAMAX, LASIX, TIKOSYN, LIPITOR, NITROSTAT, PROVENTIL [Concomitant]
  3. NOVOLOG, PREDNISONE, NOVOLOG, ISOSORB MONONITRATE, DILTIAZEM [Concomitant]
  4. TOPROL, LEFLUNOMIDE, PLAVIX, ELIQUIS, BASAGLAR, FISH OIL [Concomitant]

REACTIONS (1)
  - Hospitalisation [None]

NARRATIVE: CASE EVENT DATE: 20200814
